FAERS Safety Report 22317223 (Version 1)
Quarter: 2023Q2

REPORT INFORMATION
  Report Type: Spontaneous
  Country: US (occurrence: US)
  Receive Date: 20230515
  Receipt Date: 20230515
  Transmission Date: 20230722
  Serious: Yes (Life-Threatening, Hospitalization)
  Sender: FDA-Public Use
  Company Number: US-drreddys-LIT/USA/23/0164798

PATIENT
  Age: 71 Year
  Sex: Female

DRUGS (13)
  1. CLONIDINE [Suspect]
     Active Substance: CLONIDINE
     Indication: Product used for unknown indication
  2. LEVOFLOXACIN [Suspect]
     Active Substance: LEVOFLOXACIN
     Indication: Sepsis
  3. METOPROLOL SUCCINATE [Suspect]
     Active Substance: METOPROLOL SUCCINATE
     Indication: Hypertension
  4. FUROSEMIDE [Suspect]
     Active Substance: FUROSEMIDE
     Indication: Hypertension
  5. LISINOPRIL [Suspect]
     Active Substance: LISINOPRIL
     Indication: Hypertension
  6. CLEVIDIPINE [Suspect]
     Active Substance: CLEVIDIPINE
     Indication: Hypertensive urgency
     Route: 041
  7. MEROPENEM [Suspect]
     Active Substance: MEROPENEM
     Indication: Sepsis
  8. HYDRALAZINE [Suspect]
     Active Substance: HYDRALAZINE HYDROCHLORIDE
     Indication: Hypertension
  9. LINEZOLID [Suspect]
     Active Substance: LINEZOLID
     Indication: Sepsis
  10. RITUXIMAB [Suspect]
     Active Substance: RITUXIMAB
     Indication: Immunosuppression
  11. METHYLPREDNISOLONE [Suspect]
     Active Substance: METHYLPREDNISOLONE
     Indication: Product used for unknown indication
  12. ATOVAQUONE [Suspect]
     Active Substance: ATOVAQUONE
     Indication: Pneumocystis jirovecii pneumonia
  13. ACETAMINOPHEN [Concomitant]
     Active Substance: ACETAMINOPHEN
     Indication: Product used for unknown indication

REACTIONS (13)
  - Respiratory failure [Unknown]
  - Hypertensive urgency [Unknown]
  - Pneumonia [Unknown]
  - Pulmonary congestion [Unknown]
  - Pulmonary alveolar haemorrhage [Unknown]
  - Acute kidney injury [Unknown]
  - Nephritic syndrome [Unknown]
  - Anti-neutrophil cytoplasmic antibody positive vasculitis [Unknown]
  - Pneumocystis jirovecii pneumonia [Unknown]
  - Hepatitis B [Unknown]
  - Sepsis [Unknown]
  - Drug ineffective [Unknown]
  - Product use in unapproved indication [Unknown]
